FAERS Safety Report 4692931-2 (Version None)
Quarter: 2005Q2

REPORT INFORMATION
  Report Type: 
  Country: None (occurrence: None)
  Receive Date: 20050615
  Receipt Date: 20050531
  Transmission Date: 20051028
  Serious: Yes (Hospitalization)
  Sender: FDA-Public Use
  Company Number: S05-NOR-02118-01

PATIENT
  Sex: Female

DRUGS (1)
  1. CIPRALEX (ESCITALOPRAM) [Suspect]
     Dosage: 10 MG QD PO
     Route: 048

REACTIONS (4)
  - COORDINATION ABNORMAL [None]
  - DIARRHOEA [None]
  - DYSPHONIA [None]
  - TREMOR [None]
